FAERS Safety Report 6329382-0 (Version None)
Quarter: 2009Q3

REPORT INFORMATION
  Report Type: 
  Country: None (occurrence: None)
  Receive Date: 20090818
  Receipt Date: 20090504
  Transmission Date: 20100115
  Serious: No
  Sender: FDA-Public Use
  Company Number: WAES 0903USA02560

PATIENT
  Age: 50 Year
  Sex: Female
  Weight: 61.2356 kg

DRUGS (2)
  1. JANUVIA [Suspect]
     Indication: GLYCOSYLATED HAEMOGLOBIN INCREASED
     Dosage: 100 MG/DAILY/PO
     Route: 048
     Dates: start: 20090101, end: 20090131
  2. METFORMIN HCL [Concomitant]

REACTIONS (2)
  - ABDOMINAL DISCOMFORT [None]
  - GLYCOSYLATED HAEMOGLOBIN INCREASED [None]
